FAERS Safety Report 11694039 (Version 1)
Quarter: 2015Q4

REPORT INFORMATION
  Report Type: Spontaneous
  Country: US (occurrence: US)
  Receive Date: 20151103
  Receipt Date: 20151103
  Transmission Date: 20160304
  Serious: Yes (Other)
  Sender: FDA-Public Use
  Company Number: US-ELI_LILLY_AND_COMPANY-US201510008886

PATIENT
  Age: 58 Year
  Sex: Female

DRUGS (2)
  1. FORTEO [Suspect]
     Active Substance: TERIPARATIDE
     Dosage: UNK, QD
     Route: 065
  2. FORTEO [Suspect]
     Active Substance: TERIPARATIDE
     Indication: OSTEOPOROSIS
     Dosage: UNK, QD
     Route: 065
     Dates: start: 2014

REACTIONS (13)
  - Road traffic accident [Unknown]
  - Limb injury [Recovering/Resolving]
  - Humerus fracture [Unknown]
  - Tooth disorder [Unknown]
  - Foot fracture [Unknown]
  - Neuropathy peripheral [Unknown]
  - Arthritis [Unknown]
  - Memory impairment [Unknown]
  - Wrist fracture [Unknown]
  - Osteopenia [Unknown]
  - Gingival recession [Unknown]
  - Clumsiness [Unknown]
  - Cellulitis [Unknown]

NARRATIVE: CASE EVENT DATE: 201506
